FAERS Safety Report 8918177 (Version 6)
Quarter: 2014Q1

REPORT INFORMATION
  Report Type: Spontaneous
  Country: US (occurrence: US)
  Receive Date: 20121120
  Receipt Date: 20140219
  Transmission Date: 20141002
  Serious: Yes (Hospitalization, Other)
  Sender: FDA-Public Use
  Company Number: US-009507513-1211USA007919

PATIENT
  Sex: Female
  Weight: 51.7 kg

DRUGS (8)
  1. FOSAMAX [Suspect]
     Indication: OSTEOPOROSIS
     Dosage: 70 MG, QW
     Route: 048
     Dates: start: 2000
  2. ALENDRONATE SODIUM [Suspect]
     Indication: OSTEOPOROSIS
     Dosage: 70 MG, QW
     Route: 048
     Dates: start: 200805, end: 201101
  3. VITAMINS (UNSPECIFIED) [Concomitant]
     Dosage: ONE, QD
     Dates: start: 1991, end: 2011
  4. CALCIUM (UNSPECIFIED) (+) VITAMIN D (UNSPECIFIED) [Concomitant]
     Dosage: 1200-2400 MG DAILY
     Dates: start: 1990
  5. OMEGA-3 MARINE TRIGLYCERIDES [Concomitant]
     Dosage: 1200 MG QD
     Dates: start: 1990
  6. OMEPRAZOLE [Concomitant]
     Indication: GASTROOESOPHAGEAL REFLUX DISEASE
     Dosage: 20 MG, UNK
     Dates: start: 1990
  7. PRILOSEC [Concomitant]
     Dosage: UNK
     Dates: start: 1990
  8. NEXIUM [Concomitant]
     Dosage: UNK
     Dates: start: 1990

REACTIONS (53)
  - Intramedullary rod insertion [Unknown]
  - Bone graft [Unknown]
  - Anaemia postoperative [Unknown]
  - Knee arthroplasty [Unknown]
  - Knee arthroplasty [Unknown]
  - Knee arthroplasty [Unknown]
  - Cerebrovascular accident [Unknown]
  - Fracture nonunion [Unknown]
  - Device breakage [Unknown]
  - Open reduction of fracture [Unknown]
  - Bone graft [Unknown]
  - Open reduction of fracture [Unknown]
  - Device breakage [Unknown]
  - Fracture delayed union [Unknown]
  - Medical device removal [Unknown]
  - Bone graft [Unknown]
  - Surgery [Unknown]
  - Blindness unilateral [Unknown]
  - Hypoacusis [Unknown]
  - Medical device removal [Unknown]
  - Femur fracture [Recovered/Resolved]
  - Arthralgia [Unknown]
  - Adverse event [Unknown]
  - Dental implantation [Unknown]
  - Hypertension [Unknown]
  - Blood cholesterol increased [Unknown]
  - Anaphylactic reaction [Unknown]
  - Depression [Unknown]
  - Anaemia [Unknown]
  - Osteoarthritis [Unknown]
  - Haematocrit abnormal [Unknown]
  - Pain [Recovering/Resolving]
  - Gastrointestinal disorder [Unknown]
  - Hiatus hernia [Unknown]
  - Spinal osteoarthritis [Unknown]
  - Chest pain [Recovered/Resolved]
  - Arthritis [Unknown]
  - Hepatic cyst [Unknown]
  - Upper-airway cough syndrome [Not Recovered/Not Resolved]
  - Presyncope [Unknown]
  - Gastrooesophageal reflux disease [Unknown]
  - Oesophageal ulcer [Unknown]
  - Back pain [Not Recovered/Not Resolved]
  - Musculoskeletal pain [Not Recovered/Not Resolved]
  - Vomiting [Unknown]
  - Nausea [Unknown]
  - Constipation [Unknown]
  - Treatment failure [Unknown]
  - Musculoskeletal pain [Unknown]
  - Muscle spasms [Unknown]
  - Drug ineffective [Unknown]
  - Gastritis [Unknown]
  - Muscle spasms [Unknown]
